FAERS Safety Report 6731466-X (Version None)
Quarter: 2010Q2

REPORT INFORMATION
  Report Type: 
  Country: None (occurrence: None)
  Receive Date: 20100519
  Receipt Date: 20100511
  Transmission Date: 20101027
  Serious: Yes (Hospitalization)
  Sender: FDA-Public Use
  Company Number: US-BIOGENIDEC-2010BI015780

PATIENT
  Age: 43 Year
  Sex: Male

DRUGS (1)
  1. TYSABRI [Suspect]
     Indication: MULTIPLE SCLEROSIS
     Route: 042
     Dates: start: 20080613

REACTIONS (5)
  - DEVICE ISSUE [None]
  - DIARRHOEA [None]
  - GALLBLADDER DISORDER [None]
  - PYREXIA [None]
  - URINARY TRACT INFECTION [None]
